FAERS Safety Report 8213973-6 (Version None)
Quarter: 2012Q1

REPORT INFORMATION
  Report Type: 
  Country: None (occurrence: None)
  Receive Date: 20120316
  Receipt Date: 20120313
  Transmission Date: 20120608
  Serious: No
  Sender: FDA-Public Use
  Company Number: US-PFIZER INC-2012066498

PATIENT
  Sex: Female
  Weight: 49 kg

DRUGS (4)
  1. ALLEGRA [Concomitant]
     Indication: SINUS DISORDER
     Dosage: UNK
  2. DEXLANSOPRAZOLE [Concomitant]
     Dosage: UNK
  3. PREMARIN [Suspect]
     Indication: HOT FLUSH
     Dosage: 0.625 MG, 1X/DAY
     Route: 048
     Dates: start: 19900101
  4. PREMARIN [Suspect]
     Indication: MENOPAUSAL DISORDER

REACTIONS (1)
  - HOT FLUSH [None]
